FAERS Safety Report 17769564 (Version 1)
Quarter: 2020Q2

REPORT INFORMATION
  Report Type: Spontaneous
  Country: US (occurrence: US)
  Receive Date: 20200512
  Receipt Date: 20200512
  Transmission Date: 20200714
  Serious: Yes (Death, Hospitalization)
  Sender: FDA-Public Use
  Company Number: US-HIKMA PHARMACEUTICALS USA INC.-US-H14001-20-02199

PATIENT
  Age: 80 Year
  Sex: Female

DRUGS (4)
  1. LIPOSOMAL IRINOTECAN [Suspect]
     Active Substance: IRINOTECAN HYDROCHLORIDE
     Indication: PANCREATIC CARCINOMA METASTATIC
     Route: 042
     Dates: start: 20200319
  2. LEUCOVORIN. [Suspect]
     Active Substance: LEUCOVORIN
     Indication: PANCREATIC CARCINOMA METASTATIC
     Route: 042
     Dates: start: 20200319
  3. ZEMPLAR [Suspect]
     Active Substance: PARICALCITOL
     Indication: PANCREATIC CARCINOMA METASTATIC
     Route: 042
     Dates: start: 20200319, end: 20200326
  4. 5-FLUOROURACIL [Suspect]
     Active Substance: FLUOROURACIL
     Indication: PANCREATIC CARCINOMA METASTATIC
     Route: 065
     Dates: start: 20200319, end: 20200321

REACTIONS (6)
  - Pneumonia [Unknown]
  - Coronavirus test positive [Unknown]
  - Superinfection [Unknown]
  - Productive cough [Unknown]
  - Death [Fatal]
  - Viral infection [Unknown]

NARRATIVE: CASE EVENT DATE: 20200402
